FAERS Safety Report 24073868 (Version 3)
Quarter: 2024Q3

REPORT INFORMATION
  Report Type: Spontaneous
  Country: KR (occurrence: KR)
  Receive Date: 20240710
  Receipt Date: 20240819
  Transmission Date: 20241017
  Serious: Yes (Other)
  Sender: OTSUKA
  Company Number: KR-OTSUKA-2024_019055

PATIENT
  Age: 6 Decade
  Sex: Female

DRUGS (2)
  1. ABILIFY MAINTENA [Suspect]
     Active Substance: ARIPIPRAZOLE
     Indication: Schizophrenia
     Dosage: 400 MG, QM (FOR TWO MONTHS)
     Route: 065
     Dates: start: 202405
  2. ABILIFY MAINTENA [Suspect]
     Active Substance: ARIPIPRAZOLE
     Dosage: 800 MG (TWO INJECTION OF 400 MG)
     Route: 065
     Dates: start: 202407

REACTIONS (2)
  - Hallucination, auditory [Unknown]
  - Drug monitoring procedure not performed [Unknown]
